FAERS Safety Report 12614862 (Version 2)
Quarter: 2016Q3

REPORT INFORMATION
  Report Type: Spontaneous
  Country: JP (occurrence: JP)
  Receive Date: 20160802
  Receipt Date: 20160912
  Transmission Date: 20161109
  Serious: Yes (Hospitalization, Other)
  Sender: FDA-Public Use
  Company Number: JP-GLAXOSMITHKLINE-JP2016110210

PATIENT
  Age: 8 Decade
  Sex: Female

DRUGS (4)
  1. LANSOPRAZOLE. [Suspect]
     Active Substance: LANSOPRAZOLE
     Indication: PAIN
  2. MELOXICAM. [Suspect]
     Active Substance: MELOXICAM
     Indication: PAIN
  3. MELOXICAM. [Suspect]
     Active Substance: MELOXICAM
  4. LANSOPRAZOLE. [Suspect]
     Active Substance: LANSOPRAZOLE

REACTIONS (3)
  - Oesophageal mucosal tear [Recovered/Resolved]
  - Scar [Recovered/Resolved]
  - Colitis microscopic [Recovered/Resolved]
